FAERS Safety Report 6303425-2 (Version None)
Quarter: 2009Q3

REPORT INFORMATION
  Report Type: 
  Country: None (occurrence: None)
  Receive Date: 20090810
  Receipt Date: 20090731
  Transmission Date: 20100115
  Serious: Yes (Hospitalization)
  Sender: FDA-Public Use
  Company Number: FR-PFIZER INC-2009248497

PATIENT
  Age: 69 Year

DRUGS (8)
  1. TAHOR [Suspect]
     Dosage: 20 MG, 1X/DAY
     Route: 048
     Dates: start: 20090401
  2. PRASUGREL [Suspect]
     Dosage: 10 MG, 1X/DAY
     Route: 048
     Dates: start: 20090401
  3. KARDEGIC [Suspect]
     Dosage: 75 MG, 1X/DAY
     Route: 048
  4. MOPRAL [Suspect]
     Dosage: 20 MG, 1X/DAY
     Route: 048
     Dates: start: 20090401
  5. STILNOX [Suspect]
     Dosage: UNK
     Route: 048
  6. SKENAN [Suspect]
     Dosage: UNK
     Route: 048
  7. FORLAX [Concomitant]
     Dosage: UNK
  8. ACTISKENAN [Concomitant]
     Dosage: UNK

REACTIONS (3)
  - ANAEMIA [None]
  - CONDITION AGGRAVATED [None]
  - THROMBOCYTOPENIA [None]
